FAERS Safety Report 6372297-2 (Version None)
Quarter: 2009Q3

REPORT INFORMATION
  Report Type: 
  Country: None (occurrence: None)
  Receive Date: 20090924
  Receipt Date: 20090915
  Transmission Date: 20100115
  Serious: Yes (Other)
  Sender: FDA-Public Use
  Company Number: US-CELGENEUS-163-21880-09091483

PATIENT

DRUGS (3)
  1. REVLIMID [Suspect]
     Route: 065
  2. REVLIMID [Suspect]
     Dosage: 10MG, DAILY WITH DOSE ESCALATION IN 5MG INCREMENTS EVERY 1-2 WEEKS MAXIUM DOSE OF 25MG/DAY
     Route: 065
  3. PREDNISONE TAB [Concomitant]
     Indication: PROPHYLAXIS
     Dosage: DAILY FOR 5 DAYS FOLLOWED BY 10 MG/DAY FOR 5 DAYS
     Route: 048

REACTIONS (1)
  - TUMOUR FLARE [None]
